FAERS Safety Report 21232470 (Version 1)
Quarter: 2022Q3

REPORT INFORMATION
  Report Type: Spontaneous
  Country: US (occurrence: US)
  Receive Date: 20220819
  Receipt Date: 20220819
  Transmission Date: 20221027
  Serious: Yes (Other)
  Sender: FDA-Public Use
  Company Number: US-MYLANLABS-2022M1086200

PATIENT
  Age: 75 Year
  Sex: Female

DRUGS (4)
  1. CYCLOSPORINE [Suspect]
     Active Substance: CYCLOSPORINE
     Indication: Dry eye
     Dosage: DROPS TWICE PER DAY IN BOTH EYES, BID
     Route: 047
  2. TRIAMCINOLONE [Suspect]
     Active Substance: TRIAMCINOLONE
     Indication: Cystoid macular oedema
     Dosage: UNK, TWICE IN THE RIGHT EYE AND THREE TIMES IN THE LEFT EYE
  3. DEXAMETHASONE [Suspect]
     Active Substance: DEXAMETHASONE
     Indication: Cystoid macular oedema
     Dosage: UNK, 0.7MG INTRAVITREAL IMPLANTS IN EACH EYE
  4. KETOROLAC [Concomitant]
     Active Substance: KETOROLAC TROMETHAMINE
     Indication: Iritis
     Dosage: UNK, EYEDROPS; USED INTERMITTENTLY FOR FLARE-UPS OF IRITIS
     Route: 047

REACTIONS (3)
  - Keratitis [Recovered/Resolved]
  - Microsporidia infection [Recovered/Resolved]
  - Off label use [Unknown]
